FAERS Safety Report 6768849-8 (Version None)
Quarter: 2010Q2

REPORT INFORMATION
  Report Type: 
  Country: None (occurrence: None)
  Receive Date: 20100611
  Receipt Date: 20100525
  Transmission Date: 20101027
  Serious: Yes (Death, Hospitalization, Other)
  Sender: FDA-Public Use
  Company Number: 2010-1496

PATIENT
  Age: 73 Year
  Sex: Male

DRUGS (6)
  1. APO-GO AMPOULES (APO-GO) (APOMORPHINE HYDROCHLORIDE) (APOMORPHINE HYDR [Suspect]
     Indication: PARKINSON'S DISEASE
     Dosage: 97.5 NG (6.5 NG, CONTINOUS FROM 7:00 AM TO 10.00 PM, SUBCUTANEOUS
     Route: 058
     Dates: start: 20080515
  2. MADOPAR LT [Concomitant]
  3. CLOZAPINE [Concomitant]
  4. ENTACAPONE [Concomitant]
  5. CABERGOLINE [Concomitant]
  6. AMANTADINE HCL [Concomitant]

REACTIONS (5)
  - ABDOMINAL NEOPLASM [None]
  - ALTERED STATE OF CONSCIOUSNESS [None]
  - GENERAL PHYSICAL HEALTH DETERIORATION [None]
  - METASTASES TO LIVER [None]
  - METASTASES TO PANCREAS [None]
